FAERS Safety Report 23480594 (Version 3)
Quarter: 2024Q2

REPORT INFORMATION
  Report Type: Other
  Country: CA (occurrence: CA)
  Receive Date: 20240205
  Receipt Date: 20240410
  Transmission Date: 20240716
  Serious: Yes (Other)
  Sender: FDA-Public Use
  Company Number: CA-002147023-NVSC2023CA207517

PATIENT
  Age: 30 Year
  Sex: Female

DRUGS (3)
  1. XOLAIR [Suspect]
     Active Substance: OMALIZUMAB
     Indication: Asthma
     Dosage: 300 MG (EVERY 4 WEEKS)
     Route: 058
     Dates: start: 20160303
  2. XOLAIR [Suspect]
     Active Substance: OMALIZUMAB
     Dosage: 300 MG (EVERY 4 WEEKS)
     Route: 058
     Dates: start: 20230823
  3. XOLAIR [Suspect]
     Active Substance: OMALIZUMAB
     Dosage: 300 MG (EVERY 4 WEEKS)
     Route: 058
     Dates: start: 20240111

REACTIONS (16)
  - Anaphylactic reaction [Unknown]
  - Angioedema [Unknown]
  - Dysphagia [Recovered/Resolved]
  - Middle insomnia [Unknown]
  - Aphonia [Not Recovered/Not Resolved]
  - Pharyngeal swelling [Unknown]
  - Chest pain [Unknown]
  - Swelling [Not Recovered/Not Resolved]
  - Dyspnoea [Recovered/Resolved]
  - Erythema [Unknown]
  - Face oedema [Unknown]
  - Oedema peripheral [Unknown]
  - Localised oedema [Unknown]
  - Product dose omission issue [Unknown]
  - Injection site erythema [Recovered/Resolved]
  - Injection site swelling [Recovered/Resolved]

NARRATIVE: CASE EVENT DATE: 20230101
